FAERS Safety Report 5812845-1 (Version None)
Quarter: 2008Q3

REPORT INFORMATION
  Report Type: 
  Country: None (occurrence: None)
  Receive Date: 20080711
  Receipt Date: 20080626
  Transmission Date: 20090109
  Serious: Yes (Other)
  Sender: FDA-Public Use
  Company Number: 8033962

PATIENT
  Sex: Male

DRUGS (6)
  1. KEPPRA [Suspect]
     Indication: CONVULSION
     Dosage: 500 MG 2/D PO
     Route: 048
     Dates: start: 20080612, end: 20080626
  2. LEXAPRO [Concomitant]
  3. ZOLPIDEM [Concomitant]
  4. POTASSIUM CHLORIDE [Concomitant]
  5. FLAGYL [Concomitant]
  6. PANTOPRAZOLE SODIUM [Concomitant]

REACTIONS (1)
  - LEUKOPENIA [None]
